FAERS Safety Report 7392531-X (Version None)
Quarter: 2011Q2

REPORT INFORMATION
  Report Type: 
  Country: None (occurrence: None)
  Receive Date: 20110404
  Receipt Date: 20081205
  Transmission Date: 20111010
  Serious: Yes (Hospitalization, Other)
  Sender: FDA-Public Use
  Company Number: US-BAYER-200839697NA

PATIENT
  Sex: Female
  Weight: 54.422 kg

DRUGS (26)
  1. MANNITOL [Concomitant]
     Dosage: UNK
     Route: 042
     Dates: start: 20060908, end: 20060908
  2. NITROGLYCERIN [Concomitant]
     Dosage: INTRAVENOUS AND TOPICAL
     Dates: end: 20060911
  3. HUMALOG [Concomitant]
     Dosage: UNK
     Dates: start: 20060908, end: 20060909
  4. FAMOTIDINE [Concomitant]
     Dosage: UNK
     Dates: start: 20060908, end: 20061002
  5. CEFAZOLIN [Concomitant]
     Dosage: UNK
     Route: 042
     Dates: start: 20060908, end: 20060908
  6. WARFARIN SODIUM [Concomitant]
     Dosage: 3 MG, TUESDAY, THURSDAY
     Route: 048
  7. VANCOMYCIN [Concomitant]
     Dosage: 1 G, PREOPERATIVELY
     Route: 042
     Dates: start: 20060908, end: 20060909
  8. VERSED [Concomitant]
     Dosage: UNK
     Route: 042
     Dates: start: 20060908, end: 20060908
  9. RED BLOOD CELLS [Concomitant]
     Dosage: 1 U, UNK
     Dates: start: 20060908
  10. FAMOTIDINE [Concomitant]
     Dosage: 20 MG, BID
     Route: 048
     Dates: start: 20060913, end: 20060925
  11. TRASYLOL [Suspect]
     Indication: MITRAL VALVE REPLACEMENT
     Dosage: 1 ML, INITIAL TEST DOSE
     Route: 042
     Dates: start: 20060908
  12. DIOVAN [Concomitant]
     Dosage: 80 MG, QD, LONG TERM USE
     Route: 048
  13. PROTAMINE SULFATE [Concomitant]
     Dosage: 315 MG, UNK
     Route: 042
     Dates: start: 20060908, end: 20060908
  14. KETOROLAC [Concomitant]
     Dosage: UNK
     Dates: start: 20060908, end: 20060911
  15. TRASYLOL [Suspect]
     Indication: CARDIAC OPERATION
     Dosage: 50 ML, Q1HR
     Route: 042
     Dates: start: 20060908, end: 20060908
  16. COZAAR [Concomitant]
     Dosage: 50 MG, UNK
     Route: 048
     Dates: start: 20060914
  17. PHENYLEPHRINE [PHENYLEPHRINE] [Concomitant]
     Dosage: UNK
     Dates: start: 20060908, end: 20060908
  18. HEPARIN SODIUM [Concomitant]
     Dosage: 25000 U, UNK
     Route: 042
     Dates: start: 20060908, end: 20060908
  19. CELEBREX [Concomitant]
     Dosage: 200 MG, QD, LONG TERM USE
     Route: 048
     Dates: start: 20060901
  20. WARFARIN SODIUM [Concomitant]
     Dosage: 5 MG, SUNDAY, MONDAY, WEDNESDAY, FRIDAY
     Route: 048
  21. CEFTRIAXONE [Concomitant]
     Dosage: UNK
     Route: 042
     Dates: start: 20060908, end: 20060909
  22. CARDIOPLEGIA [Concomitant]
     Dosage: UNK
     Dates: start: 20060908
  23. ALTACE [Concomitant]
     Dosage: 2.5 MG, UNK
     Route: 048
  24. DIGOXIN [Concomitant]
     Dosage: 0.25 MG, QD
     Route: 048
     Dates: start: 20060901, end: 20060912
  25. TRASYLOL [Suspect]
     Indication: CARDIAC ABLATION
     Dosage: 300 ML, UNK
     Route: 042
     Dates: start: 20060908, end: 20060908
  26. NITROGLYCERIN [Concomitant]
     Dosage: UNK
     Dates: start: 20060908, end: 20060911

REACTIONS (13)
  - MULTI-ORGAN FAILURE [None]
  - RENAL FAILURE [None]
  - ANHEDONIA [None]
  - STRESS [None]
  - ANXIETY [None]
  - EMOTIONAL DISTRESS [None]
  - UNEVALUABLE EVENT [None]
  - PAIN [None]
  - RENAL INJURY [None]
  - FEAR [None]
  - INJURY [None]
  - RENAL IMPAIRMENT [None]
  - CEREBROVASCULAR ACCIDENT [None]
